FAERS Safety Report 16211255 (Version 1)
Quarter: 2019Q2

REPORT INFORMATION
  Report Type: Spontaneous
  Country: BE (occurrence: BE)
  Receive Date: 20190418
  Receipt Date: 20190418
  Transmission Date: 20190711
  Serious: Yes (Other)
  Sender: FDA-Public Use
  Company Number: BE-ACCORD-122859

PATIENT
  Sex: Female

DRUGS (7)
  1. NOBITEN [Concomitant]
     Active Substance: NEBIVOLOL
  2. AMLODIPINE [Suspect]
     Active Substance: AMLODIPINE BESYLATE
     Indication: PRODUCT USED FOR UNKNOWN INDICATION
  3. TOTALIP [Concomitant]
     Active Substance: ATORVASTATIN
  4. COZAAR PLUS [Suspect]
     Active Substance: HYDROCHLOROTHIAZIDE\LOSARTAN POTASSIUM
     Indication: PRODUCT USED FOR UNKNOWN INDICATION
  5. CEDOCARD [Concomitant]
     Active Substance: ISOSORBIDE DINITRATE
  6. ASAFLOW [Concomitant]
     Active Substance: ASPIRIN
  7. CORUNO RETARD [Concomitant]

REACTIONS (3)
  - Rash pruritic [Unknown]
  - Ecchymosis [Unknown]
  - Dermatitis bullous [Unknown]

NARRATIVE: CASE EVENT DATE: 2018
